FAERS Safety Report 13361979 (Version 1)
Quarter: 2017Q1

REPORT INFORMATION
  Report Type: Spontaneous
  Country: US (occurrence: US)
  Receive Date: 20170323
  Receipt Date: 20170323
  Transmission Date: 20170429
  Serious: Yes (Hospitalization)
  Sender: FDA-Public Use
  Company Number: US-PROCTER+GAMBLE-GS17029154

PATIENT
  Age: 63 Year
  Sex: Female

DRUGS (2)
  1. VICKS VAPORUB [Suspect]
     Active Substance: CAMPHOR (SYNTHETIC)\EUCALYPTUS OIL\MENTHOL
     Indication: RESPIRATION ABNORMAL
  2. VICKS VAPORUB [Suspect]
     Active Substance: CAMPHOR (SYNTHETIC)\EUCALYPTUS OIL\MENTHOL
     Indication: COUGH
     Dosage: 1 APPLIC, 4 /DAY UNDER NOSE AND ON CHEST
     Route: 061

REACTIONS (3)
  - Pneumonia [Recovering/Resolving]
  - Feeling abnormal [Recovering/Resolving]
  - Intentional product misuse [Unknown]

NARRATIVE: CASE EVENT DATE: 201701
